FAERS Safety Report 8418027-1 (Version None)
Quarter: 2012Q2

REPORT INFORMATION
  Report Type: 
  Country: None (occurrence: None)
  Receive Date: 20120607
  Receipt Date: 20120605
  Transmission Date: 20120825
  Serious: Yes (Other)
  Sender: FDA-Public Use
  Company Number: US-BAYER-2011-071746

PATIENT
  Age: 26 Year
  Sex: Female
  Weight: 53.515 kg

DRUGS (1)
  1. MIRENA [Suspect]
     Indication: CONTRACEPTION
     Dosage: 20 MCG/24HR, CONT
     Route: 015
     Dates: start: 20101110, end: 20120309

REACTIONS (5)
  - PREMATURE LABOUR [None]
  - DEVICE BREAKAGE [None]
  - PREMATURE DELIVERY [None]
  - PREGNANCY WITH CONTRACEPTIVE DEVICE [None]
  - FIBRONECTIN INCREASED [None]
